FAERS Safety Report 9011055 (Version 1)
Quarter: 2013Q1

REPORT INFORMATION
  Report Type: Spontaneous
  Country: US (occurrence: US)
  Receive Date: 20130109
  Receipt Date: 20130109
  Transmission Date: 20140127
  Serious: Yes (Hospitalization)
  Sender: FDA-Public Use
  Company Number: US-GLAXOSMITHKLINE-A1007560A

PATIENT
  Age: 38 Year
  Sex: Male

DRUGS (1)
  1. ADVAIR [Suspect]
     Route: 055

REACTIONS (2)
  - Asthma [Unknown]
  - Treatment noncompliance [Unknown]
